FAERS Safety Report 25293831 (Version 1)
Quarter: 2025Q2

REPORT INFORMATION
  Report Type: Spontaneous
  Country: US (occurrence: US)
  Receive Date: 20250510
  Receipt Date: 20250510
  Transmission Date: 20250716
  Serious: No
  Sender: UCB
  Company Number: US-UCBSA-2024017381

PATIENT
  Age: 45 Year
  Sex: Female

DRUGS (1)
  1. CIMZIA [Suspect]
     Active Substance: CERTOLIZUMAB PEGOL
     Indication: Product used for unknown indication
     Route: 048
     Dates: start: 201809

REACTIONS (3)
  - Therapy interrupted [Unknown]
  - Insurance issue [Unknown]
  - Off label use [Unknown]

NARRATIVE: CASE EVENT DATE: 20180901
